FAERS Safety Report 23827099 (Version 1)
Quarter: 2024Q2

REPORT INFORMATION
  Report Type: Spontaneous
  Country: US (occurrence: US)
  Receive Date: 20240507
  Receipt Date: 20240507
  Transmission Date: 20240715
  Serious: No
  Sender: FDA-Public Use
  Company Number: US-GLENMARK PHARMACEUTICALS-2024GMK088800

PATIENT

DRUGS (4)
  1. RYALTRIS [Suspect]
     Active Substance: MOMETASONE FUROATE MONOHYDRATE\OLOPATADINE HYDROCHLORIDE
     Indication: Sinusitis
     Dosage: 2 DOSAGE FORM, OD, (2 SPRAYS IN EACH NOSTRILS AT NIGHT)
     Route: 045
     Dates: start: 20240127
  2. RYALTRIS [Suspect]
     Active Substance: MOMETASONE FUROATE MONOHYDRATE\OLOPATADINE HYDROCHLORIDE
     Indication: Hypersensitivity
  3. RYALTRIS [Suspect]
     Active Substance: MOMETASONE FUROATE MONOHYDRATE\OLOPATADINE HYDROCHLORIDE
     Indication: Dyspnoea
  4. RYALTRIS [Suspect]
     Active Substance: MOMETASONE FUROATE MONOHYDRATE\OLOPATADINE HYDROCHLORIDE
     Indication: Nasal disorder

REACTIONS (6)
  - Sinusitis [Unknown]
  - Condition aggravated [Unknown]
  - Drug dose omission by device [Unknown]
  - Drug ineffective for unapproved indication [Unknown]
  - Product availability issue [Unknown]
  - Suspected product contamination [Unknown]
